FAERS Safety Report 25127864 (Version 1)
Quarter: 2025Q1

REPORT INFORMATION
  Report Type: Spontaneous
  Country: US (occurrence: US)
  Receive Date: 20250327
  Receipt Date: 20250327
  Transmission Date: 20250408
  Serious: Yes (Other)
  Sender: Norvium Bioscience
  Company Number: US-Norvium Bioscience LLC-079824

PATIENT
  Sex: Male

DRUGS (1)
  1. VENLAFAXINE HYDROCHLORIDE [Suspect]
     Active Substance: VENLAFAXINE HYDROCHLORIDE
     Indication: Product used for unknown indication
     Dates: start: 2012

REACTIONS (10)
  - Liver injury [Unknown]
  - Erectile dysfunction [Unknown]
  - Hallucination, auditory [Unknown]
  - Cerebrovascular accident [Unknown]
  - Infertility male [Unknown]
  - Renal disorder [Unknown]
  - Hypertension [Unknown]
  - Aggression [Unknown]
  - Nerve injury [Unknown]
  - Walking aid user [Unknown]

NARRATIVE: CASE EVENT DATE: 20180101
